FAERS Safety Report 7679709-2 (Version None)
Quarter: 2011Q3

REPORT INFORMATION
  Report Type: 
  Country: None (occurrence: None)
  Receive Date: 20110812
  Receipt Date: 20110727
  Transmission Date: 20111222
  Serious: Yes (Death)
  Sender: FDA-Public Use
  Company Number: US-BAXTER-2011BH025876

PATIENT
  Age: 71 Year
  Sex: Male

DRUGS (4)
  1. DIANEAL [Suspect]
     Indication: PERITONEAL DIALYSIS
     Route: 033
     Dates: start: 20080201, end: 20110401
  2. FRESENIUS UNSPECIFIED PRODUCT [Suspect]
     Indication: PERITONEAL DIALYSIS
     Route: 033
     Dates: start: 20110401
  3. DIANEAL [Suspect]
     Indication: RENAL FAILURE CHRONIC
     Route: 033
     Dates: start: 20080201, end: 20110401
  4. DIANEAL [Suspect]
     Indication: DIABETES MELLITUS
     Route: 033
     Dates: start: 20080201, end: 20110401

REACTIONS (1)
  - DEATH [None]
